FAERS Safety Report 11767682 (Version 1)
Quarter: 2015Q4

REPORT INFORMATION
  Report Type: Other
  Country: US (occurrence: US)
  Receive Date: 20151123
  Receipt Date: 20151123
  Transmission Date: 20160304
  Serious: No
  Sender: FDA-Public Use
  Company Number: US-APOTEX-2015AP011495

PATIENT
  Sex: Female

DRUGS (1)
  1. MODAFINIL TABLETS USP [Suspect]
     Active Substance: MODAFINIL
     Indication: NARCOLEPSY
     Dosage: UNK
     Route: 065

REACTIONS (4)
  - Dysgeusia [Unknown]
  - Drug ineffective [Unknown]
  - Product formulation issue [Unknown]
  - Product taste abnormal [Unknown]
